FAERS Safety Report 17493757 (Version 1)
Quarter: 2020Q1

REPORT INFORMATION
  Report Type: Spontaneous
  Country: US (occurrence: US)
  Receive Date: 20200303
  Receipt Date: 20200303
  Transmission Date: 20200409
  Serious: No
  Sender: FDA-Public Use
  Company Number: US-AMNEAL PHARMACEUTICALS-2019-IPXL-01199

PATIENT
  Age: 76 Year
  Sex: Female

DRUGS (2)
  1. RYTARY [Suspect]
     Active Substance: CARBIDOPA\LEVODOPA
     Dosage: 23.75/95 MG, 4 DOSAGE FORM, TID
     Route: 048
  2. RYTARY [Suspect]
     Active Substance: CARBIDOPA\LEVODOPA
     Indication: PARKINSON^S DISEASE
     Dosage: 36.25/145 MG, 3 CAPSULES 3 TIMES A DAY
     Route: 048
     Dates: end: 20190604

REACTIONS (4)
  - Speech disorder [Unknown]
  - Emotional distress [Unknown]
  - Tremor [Unknown]
  - Therapy cessation [Unknown]

NARRATIVE: CASE EVENT DATE: 201906
